FAERS Safety Report 21139921 (Version 2)
Quarter: 2022Q3

REPORT INFORMATION
  Report Type: Report from Study
  Country: CA (occurrence: CA)
  Receive Date: 20220728
  Receipt Date: 20220824
  Transmission Date: 20221027
  Serious: Yes (Other)
  Sender: FDA-Public Use
  Company Number: CA-JNJFOC-20220732692

PATIENT
  Age: 16 Year
  Sex: Male
  Weight: 106 kg

DRUGS (1)
  1. REMICADE [Suspect]
     Active Substance: INFLIXIMAB
     Indication: Crohn^s disease
     Dosage: ON 22-JUL-2022, PATIENT RECEIVED 63RD INFLIXIMAB RECOMBINANT INFUSION OF 600 MG AND PARTIAL HARVEY-B
     Route: 042
     Dates: start: 20170902

REACTIONS (9)
  - Haematemesis [Recovered/Resolved]
  - General physical health deterioration [Unknown]
  - Weight decreased [Unknown]
  - Vomiting [Unknown]
  - Abdominal pain [Unknown]
  - Constipation [Unknown]
  - Dyspepsia [Unknown]
  - Nausea [Unknown]
  - Off label use [Unknown]

NARRATIVE: CASE EVENT DATE: 20170902
